FAERS Safety Report 8832148 (Version 4)
Quarter: 2014Q2

REPORT INFORMATION
  Report Type: Spontaneous
  Country: US (occurrence: US)
  Receive Date: 20121009
  Receipt Date: 20140507
  Transmission Date: 20141212
  Serious: No
  Sender: FDA-Public Use
  Company Number: US-009507513-1210USA001875

PATIENT
  Sex: Male
  Weight: 93.42 kg

DRUGS (2)
  1. PROPECIA [Suspect]
     Indication: ANDROGENETIC ALOPECIA
     Dosage: 1 MG QD
     Route: 048
     Dates: start: 20001226
  2. PROPECIA [Suspect]
     Indication: ALOPECIA

REACTIONS (14)
  - Cognitive disorder [Not Recovered/Not Resolved]
  - Anxiety [Unknown]
  - Hair transplant [Unknown]
  - Hair transplant [Unknown]
  - Wisdom teeth removal [Unknown]
  - Wisdom teeth removal [Unknown]
  - Hernia repair [Unknown]
  - Hernia repair [Unknown]
  - Hepatic steatosis [Unknown]
  - Onychomycosis [Unknown]
  - Erectile dysfunction [Not Recovered/Not Resolved]
  - Sexual dysfunction [Not Recovered/Not Resolved]
  - Depression [Unknown]
  - Disturbance in sexual arousal [Unknown]
